FAERS Safety Report 4372072-4 (Version None)
Quarter: 2004Q2

REPORT INFORMATION
  Report Type: 
  Country: None (occurrence: None)
  Receive Date: 20040602
  Receipt Date: 20040526
  Transmission Date: 20050107
  Serious: Yes (Hospitalization)
  Sender: FDA-Public Use
  Company Number: LBID00204001466

PATIENT
  Age: 56 Year
  Sex: Female

DRUGS (6)
  1. LITHIUM CARBONATE [Suspect]
     Indication: BIPOLAR DISORDER
     Dosage: 300 MG BID PO
     Route: 048
     Dates: end: 19970701
  2. AMITRIPTYLINE HCL [Concomitant]
  3. ISOCARBOXAZID [Concomitant]
  4. TRIFLUOPERAZINE HCL [Concomitant]
  5. DIAZEPAM [Concomitant]
  6. TEMAZEPAM [Concomitant]

REACTIONS (13)
  - ABNORMAL BEHAVIOUR [None]
  - AGITATION [None]
  - CONFUSIONAL STATE [None]
  - DYSARTHRIA [None]
  - GOITRE [None]
  - HYPERTHYROIDISM [None]
  - INCOHERENT [None]
  - INSOMNIA [None]
  - OEDEMA PERIPHERAL [None]
  - PITTING OEDEMA [None]
  - REBOUND EFFECT [None]
  - RESTLESSNESS [None]
  - THINKING ABNORMAL [None]
